FAERS Safety Report 8657497 (Version 2)
Quarter: 2013Q1

REPORT INFORMATION
  Report Type: Spontaneous
  Country: BR (occurrence: BR)
  Receive Date: 20120710
  Receipt Date: 20130211
  Transmission Date: 20140127
  Serious: Yes (Other)
  Sender: FDA-Public Use
  Company Number: PHHY2012BR058085

PATIENT
  Sex: Female

DRUGS (4)
  1. EXELON PATCH [Suspect]
     Indication: DEMENTIA ALZHEIMER^S TYPE
     Dosage: 13.3MG / 24 HOURS (27MG / 15CM2) EVERY TWO DAYS
     Route: 062
     Dates: start: 2010
  2. EXELON PATCH [Suspect]
     Dosage: 13.3MG / 24 HOURS (27MG / 15CM2) DAILY
     Route: 062
  3. DAFORIN [Concomitant]
     Indication: DEPRESSED MOOD
     Dosage: 10 DRP, QD
     Route: 048
     Dates: start: 2010
  4. MERITOR [Concomitant]
     Indication: DIABETES MELLITUS
     Dosage: 2 DF, QD (2 TABLETS DAILY)
     Route: 048

REACTIONS (4)
  - Disease progression [Unknown]
  - Memory impairment [Not Recovered/Not Resolved]
  - Repetitive speech [Not Recovered/Not Resolved]
  - Inappropriate schedule of drug administration [Unknown]
